FAERS Safety Report 18439139 (Version 2)
Quarter: 2020Q4

REPORT INFORMATION
  Report Type: Report from Study
  Country: BR (occurrence: BR)
  Receive Date: 20201028
  Receipt Date: 20201118
  Transmission Date: 20210114
  Serious: Yes (Death)
  Sender: FDA-Public Use
  Company Number: BR-GILEAD-2020-0496189

PATIENT
  Age: 61 Year
  Sex: Male
  Weight: 67 kg

DRUGS (21)
  1. QUETIAPINE. [Concomitant]
     Active Substance: QUETIAPINE
     Dates: start: 20200911
  2. TERBUTALINE [Concomitant]
     Active Substance: TERBUTALINE
     Indication: COVID-19 PNEUMONIA
     Dates: start: 20200904
  3. FUROSEMIDA [FUROSEMIDE] [Concomitant]
     Active Substance: FUROSEMIDE
     Dates: start: 20200904, end: 20200904
  4. NOREPINEFRINA [NOREPINEPHRINE] [Concomitant]
     Dosage: 4 AMPULE
     Dates: start: 20200905, end: 20200906
  5. REMDESIVIR. [Suspect]
     Active Substance: REMDESIVIR
     Dosage: 250 ML
     Route: 042
     Dates: start: 20200915
  6. PLACEBO [Suspect]
     Active Substance: UNSPECIFIED INGREDIENT
     Dosage: UNK
     Route: 042
  7. DEXMEDETOMIDINE. [Concomitant]
     Active Substance: DEXMEDETOMIDINE
     Dates: start: 20200910
  8. ENOXAPARIN [Concomitant]
     Active Substance: ENOXAPARIN
     Indication: COVID-19 PNEUMONIA
     Dates: start: 20200903
  9. SALBUTAMOL [Concomitant]
     Active Substance: ALBUTEROL
     Indication: COVID-19 PNEUMONIA
     Dates: start: 20200903
  10. MIDAZOLAM. [Concomitant]
     Active Substance: MIDAZOLAM
     Dates: start: 20200905
  11. PROPOFOL. [Concomitant]
     Active Substance: PROPOFOL
     Dates: start: 20200905, end: 20200912
  12. PLACEBO [Suspect]
     Active Substance: UNSPECIFIED INGREDIENT
     Indication: COVID-19 PNEUMONIA
     Dosage: FIRST DOSE OF BLINDED TOCILIZUMAB WHICH ALSO THE MOST RECENT DOSE PRIOR TO AE ONSET
     Route: 042
     Dates: start: 20200906
  13. CEFTRIAXONE. [Concomitant]
     Active Substance: CEFTRIAXONE
     Indication: COVID-19 PNEUMONIA
     Dates: start: 20200903, end: 20200907
  14. REMDESIVIR. [Suspect]
     Active Substance: REMDESIVIR
     Indication: COVID-19 PNEUMONIA
     Dosage: 250 ML
     Route: 042
     Dates: start: 20200906
  15. FENTANIL [Concomitant]
     Active Substance: FENTANYL
     Dates: start: 20200905
  16. DEXAMETHASONE. [Concomitant]
     Active Substance: DEXAMETHASONE
     Indication: COVID-19 PNEUMONIA
     Dates: start: 20200903
  17. HYDRALAZINE [Concomitant]
     Active Substance: HYDRALAZINE HYDROCHLORIDE
     Indication: HYPERTENSION
     Dates: start: 20200904, end: 20200905
  18. CISATRACURIUM. [Concomitant]
     Active Substance: CISATRACURIUM
     Dates: start: 20200905
  19. NOREPINEFRINA [NOREPINEPHRINE] [Concomitant]
     Dosage: 4 AMPULE
     Dates: start: 20200907, end: 20200908
  20. METADONA [METHADONE] [Concomitant]
     Dates: start: 20200912
  21. AZITHROMYCIN ANHYDROUS. [Concomitant]
     Active Substance: AZITHROMYCIN ANHYDROUS
     Dates: start: 20200903, end: 20200905

REACTIONS (1)
  - COVID-19 [Fatal]

NARRATIVE: CASE EVENT DATE: 20200916
